FAERS Safety Report 8020932-5 (Version None)
Quarter: 2011Q4

REPORT INFORMATION
  Report Type: 
  Country: None (occurrence: None)
  Receive Date: 20111229
  Receipt Date: 20111229
  Transmission Date: 20120403
  Serious: Yes (Other)
  Sender: FDA-Public Use
  Company Number: None

PATIENT
  Sex: Female
  Weight: 63.5036 kg

DRUGS (1)
  1. VALACYCLOVIR [Suspect]
     Indication: ORAL HERPES
     Dosage: 2 TABLETS 2X FOR 1 DAY BY MOUTH
     Route: 048
     Dates: start: 20111214

REACTIONS (3)
  - HEADACHE [None]
  - NECK PAIN [None]
  - INSOMNIA [None]
